FAERS Safety Report 8007171-9 (Version None)
Quarter: 2011Q4

REPORT INFORMATION
  Report Type: 
  Country: None (occurrence: None)
  Receive Date: 20111227
  Receipt Date: 20111215
  Transmission Date: 20120403
  Serious: Yes (Death)
  Sender: FDA-Public Use
  Company Number: PL-CELGENEUS-129-21880-11121920

PATIENT

DRUGS (5)
  1. THALIDOMIDE [Suspect]
     Route: 048
  2. REVLIMID [Suspect]
     Route: 048
     Dates: start: 20110901
  3. DEXAMETHASONE [Concomitant]
     Route: 065
  4. CYCLOPHOSPHAMIDE [Concomitant]
     Route: 065
  5. VELCADE [Concomitant]
     Route: 065

REACTIONS (1)
  - DEATH [None]
